FAERS Safety Report 9483158 (Version 2)
Quarter: 2013Q3

REPORT INFORMATION
  Report Type: Spontaneous
  Country: CA (occurrence: CA)
  Receive Date: 20130828
  Receipt Date: 20130828
  Transmission Date: 20140515
  Serious: Yes (Death, Hospitalization)
  Sender: FDA-Public Use
  Company Number: CA-AMGEN-US112183

PATIENT
  Age: 57 Year
  Sex: Male

DRUGS (1)
  1. ENBREL [Suspect]
     Indication: RHEUMATOID ARTHRITIS
     Dosage: 25 MG, 2 TIMES/WK
     Route: 058
     Dates: start: 20040727, end: 20050601

REACTIONS (5)
  - Renal neoplasm [Fatal]
  - Liver disorder [Fatal]
  - Haemorrhage [Fatal]
  - Blood disorder [Fatal]
  - Gastrointestinal haemorrhage [Fatal]
